FAERS Safety Report 13659080 (Version 1)
Quarter: 2017Q2

REPORT INFORMATION
  Report Type: Spontaneous
  Country: US (occurrence: US)
  Receive Date: 20170615
  Receipt Date: 20170615
  Transmission Date: 20170830
  Serious: Yes (Hospitalization)
  Sender: FDA-Public Use
  Company Number: None

PATIENT
  Age: 58 Year
  Sex: Female

DRUGS (1)
  1. EXTAVIA [Suspect]
     Active Substance: INTERFERON BETA-1B
     Indication: MULTIPLE SCLEROSIS
     Dosage: ROUTE - UNDER THE SKIN
     Route: 058
     Dates: start: 201206

REACTIONS (2)
  - Hypersensitivity [None]
  - Coma [None]

NARRATIVE: CASE EVENT DATE: 201705
